FAERS Safety Report 8901773 (Version 1)
Quarter: 2012Q4

REPORT INFORMATION
  Report Type: Spontaneous
  Country: JP (occurrence: None)
  Receive Date: 20121101
  Receipt Date: 20121101
  Transmission Date: 20130627
  Serious: Yes (Hospitalization, Other)
  Sender: FDA-Public Use
  Company Number: 2012RR-61100

PATIENT
  Age: 46 Year
  Sex: Female

DRUGS (5)
  1. PAROXETINE [Suspect]
  2. MIRTAZAPINE [Suspect]
  3. BROMAZEPAM [Suspect]
  4. NORTRIPTYLINE HYDROCHLORIDE [Suspect]
  5. ESTAZOLAM [Suspect]

REACTIONS (10)
  - Arrhythmia [None]
  - Depressed level of consciousness [None]
  - Hypotension [None]
  - Convulsion [None]
  - Bundle branch block left [None]
  - Electrocardiogram QT prolonged [None]
  - Overdose [None]
  - Drug interaction [None]
  - Electrocardiogram QRS complex prolonged [None]
  - Electrocardiogram T wave amplitude increased [None]
